FAERS Safety Report 23522581 (Version 2)
Quarter: 2024Q1

REPORT INFORMATION
  Report Type: Spontaneous
  Country: US (occurrence: US)
  Receive Date: 20240214
  Receipt Date: 20240228
  Transmission Date: 20240410
  Serious: Yes (Life-Threatening, Hospitalization, Other)
  Sender: FDA-Public Use
  Company Number: US-Axellia-005054

PATIENT
  Age: 83 Year
  Sex: Male
  Weight: 102.0 kg

DRUGS (10)
  1. VANCOMYCIN [Suspect]
     Active Substance: VANCOMYCIN
     Indication: Infection
     Dosage: STRENGTH:1 GRAM/VIAL; DOSE: 2G/500 ML X 1 STAT NORMAL SALINE ONCE
     Route: 042
     Dates: start: 20240130, end: 20240130
  2. CEFEPIME [Concomitant]
     Active Substance: CEFEPIME HYDROCHLORIDE
     Indication: Product used for unknown indication
     Route: 042
     Dates: start: 20240130
  3. METOPROLOL [Concomitant]
     Active Substance: METOPROLOL
  4. OMEPRAZOLE [Concomitant]
     Active Substance: OMEPRAZOLE
  5. TADALAFIL [Concomitant]
     Active Substance: TADALAFIL
  6. TRIAMTERENE AND HYDROCHLOROTHIAZIDE [Concomitant]
     Active Substance: HYDROCHLOROTHIAZIDE\TRIAMTERENE
     Dosage: 37.5/25 DAILY
  7. ELIQUIS [Concomitant]
     Active Substance: APIXABAN
     Dosage: 5 MG BID
  8. SYNTHROID [Concomitant]
     Active Substance: LEVOTHYROXINE SODIUM
  9. LIPITOR [Concomitant]
     Active Substance: ATORVASTATIN CALCIUM
     Dosage: 10 MG QHS
  10. SODIUM CHLORIDE [Concomitant]
     Active Substance: SODIUM CHLORIDE
     Dosage: BOLUS
     Dates: start: 20240130

REACTIONS (4)
  - Taste disorder [Unknown]
  - Cardiac arrest [Recovered/Resolved]
  - Rash [Unknown]
  - Urticaria [Unknown]

NARRATIVE: CASE EVENT DATE: 20240130
